FAERS Safety Report 4381171-2 (Version None)
Quarter: 2004Q2

REPORT INFORMATION
  Report Type: 
  Country: None (occurrence: None)
  Receive Date: 20040621
  Receipt Date: 20040611
  Transmission Date: 20050107
  Serious: Yes (Other)
  Sender: FDA-Public Use
  Company Number: PHBS2004BR07760

PATIENT
  Age: 82 Year
  Sex: Male
  Weight: 62 kg

DRUGS (6)
  1. FORASEQ [Suspect]
     Indication: EMPHYSEMA
     Dosage: 1 DF/DAY
     Dates: start: 20040401, end: 20040607
  2. LOSARTAN POTASSIUM [Concomitant]
     Indication: HYPERTENSION
     Dosage: 1 DF/DAY
     Route: 048
  3. PRESSIDINE [Concomitant]
     Indication: EMPHYSEMA
     Dosage: 0.5 DF/DAY
     Route: 048
  4. TIOTROPIUM BROMIDE [Concomitant]
     Indication: EMPHYSEMA
  5. CLENIL [Concomitant]
     Dosage: 3 DRP/DAY
  6. ATROVENT [Concomitant]
     Dosage: 20 DROP/DAY

REACTIONS (4)
  - ASTHENIA [None]
  - SYNCOPE [None]
  - TONGUE PARALYSIS [None]
  - TRANSIENT ISCHAEMIC ATTACK [None]
